FAERS Safety Report 23754446 (Version 6)
Quarter: 2024Q3

REPORT INFORMATION
  Report Type: Spontaneous
  Country: US (occurrence: US)
  Receive Date: 20240418
  Receipt Date: 20240723
  Transmission Date: 20241017
  Serious: Yes (Other)
  Sender: BRISTOL MYERS SQUIBB
  Company Number: US-EXELIXIS-CABO-24074789

PATIENT
  Age: 75 Year
  Sex: Male

DRUGS (10)
  1. NIVOLUMAB [Suspect]
     Active Substance: NIVOLUMAB
     Indication: Renal cell carcinoma
     Dates: start: 202309
  2. NIVOLUMAB [Suspect]
     Active Substance: NIVOLUMAB
     Dates: start: 202311, end: 20240508
  3. CABOMETYX [Suspect]
     Active Substance: CABOZANTINIB S-MALATE
     Indication: Renal cell carcinoma
     Dates: start: 202309
  4. CABOMETYX [Suspect]
     Active Substance: CABOZANTINIB S-MALATE
  5. CABOMETYX [Suspect]
     Active Substance: CABOZANTINIB S-MALATE
     Dates: start: 202311, end: 20240508
  6. CABOMETYX [Suspect]
     Active Substance: CABOZANTINIB S-MALATE
     Dates: start: 20240511, end: 20240523
  7. CABOMETYX [Suspect]
     Active Substance: CABOZANTINIB S-MALATE
  8. ELIQUIS [Concomitant]
     Active Substance: APIXABAN
     Indication: Product used for unknown indication
  9. LISINOPRIL [Concomitant]
     Active Substance: LISINOPRIL
     Indication: Product used for unknown indication
  10. MIRALAX [Concomitant]
     Active Substance: POLYETHYLENE GLYCOL 3350
     Indication: Product used for unknown indication

REACTIONS (14)
  - Renal cancer metastatic [Unknown]
  - Ageusia [Not Recovered/Not Resolved]
  - Pain in jaw [Recovered/Resolved]
  - Hypertension [Not Recovered/Not Resolved]
  - Lymphocyte count decreased [Unknown]
  - Blood thyroid stimulating hormone increased [Recovered/Resolved]
  - Diarrhoea [Not Recovered/Not Resolved]
  - Hernia [Unknown]
  - Decreased activity [Unknown]
  - Hypoaesthesia oral [Not Recovered/Not Resolved]
  - Constipation [Unknown]
  - Insomnia [Unknown]
  - Blood creatinine increased [Recovered/Resolved]
  - Renal cyst [Unknown]

NARRATIVE: CASE EVENT DATE: 20240501
